FAERS Safety Report 7610991-3 (Version None)
Quarter: 2011Q3

REPORT INFORMATION
  Report Type: 
  Country: None (occurrence: None)
  Receive Date: 20110715
  Receipt Date: 20090415
  Transmission Date: 20111222
  Serious: Yes (Death, Hospitalization, Other)
  Sender: FDA-Public Use
  Company Number: US-AMGEN-US311012

PATIENT
  Age: 87 Year
  Sex: Female
  Weight: 49 kg

DRUGS (7)
  1. NPLATE [Suspect]
     Dates: start: 20080922
  2. PREDNISONE [Concomitant]
     Dosage: 20 MG, BID
  3. TOPROL-XL [Concomitant]
     Dosage: 50 MG, BID
  4. NYSTATIN [Concomitant]
     Dosage: UNK UNK, PRN
     Route: 048
  5. NPLATE [Suspect]
     Indication: IDIOPATHIC THROMBOCYTOPENIC PURPURA
     Dosage: 25 A?G, UNK
     Route: 058
     Dates: start: 20080922, end: 20080929
  6. GLIMEPIRIDE [Concomitant]
     Dosage: .5 MG, BID
  7. OMEPRAZOLE [Concomitant]
     Dosage: 20 MG, QD

REACTIONS (10)
  - RENAL FAILURE [None]
  - PLATELET COUNT INCREASED [None]
  - FALL [None]
  - PULMONARY EMBOLISM [None]
  - DEHYDRATION [None]
  - DECREASED APPETITE [None]
  - HYPONATRAEMIA [None]
  - ECCHYMOSIS [None]
  - VENTRICULAR TACHYCARDIA [None]
  - CARDIAC FAILURE CONGESTIVE [None]
